FAERS Safety Report 4325201-2 (Version None)
Quarter: 2004Q1

REPORT INFORMATION
  Report Type: 
  Country: None (occurrence: None)
  Receive Date: 20040324
  Receipt Date: 20040311
  Transmission Date: 20041129
  Serious: Yes (Hospitalization)
  Sender: FDA-Public Use
  Company Number: WAES 0403USA01266

PATIENT
  Age: 53 Year
  Sex: Male

DRUGS (1)
  1. TAB MK-0906 (FINASTERIDE) [Suspect]
     Indication: MALE PATTERN BALDNESS
     Dosage: 1 MG/DAILY
     Dates: start: 20020630

REACTIONS (1)
  - DUODENAL ULCER [None]
